FAERS Safety Report 5213703-6 (Version None)
Quarter: 2007Q1

REPORT INFORMATION
  Report Type: 
  Country: None (occurrence: None)
  Receive Date: 20070119
  Receipt Date: 20070108
  Transmission Date: 20070707
  Serious: Yes (Other)
  Sender: FDA-Public Use
  Company Number: US-PFIZER INC-2007003209

PATIENT
  Sex: Male
  Weight: 99.8 kg

DRUGS (8)
  1. LYRICA [Suspect]
     Indication: NEUROPATHY
     Dates: start: 20060901, end: 20061201
  2. KLOR-CON [Concomitant]
  3. ASPIRIN [Concomitant]
  4. PROSCAR [Concomitant]
  5. UROXATRAL [Concomitant]
  6. VYTORIN [Concomitant]
  7. LASIX [Concomitant]
  8. GABAPENTIN [Concomitant]

REACTIONS (1)
  - BALANCE DISORDER [None]
